FAERS Safety Report 9292370 (Version 1)
Quarter: 2013Q2

REPORT INFORMATION
  Report Type: Spontaneous
  Country: US (occurrence: None)
  Receive Date: 20130515
  Receipt Date: 20130515
  Transmission Date: 20140414
  Serious: Yes (Hospitalization)
  Sender: FDA-Public Use
  Company Number: None

PATIENT
  Age: 74 Year
  Sex: Male
  Weight: 42.64 kg

DRUGS (1)
  1. XALKORI [Suspect]
     Route: 048

REACTIONS (5)
  - Renal failure acute [None]
  - Oesophagitis ulcerative [None]
  - Oesophagitis haemorrhagic [None]
  - Aphagia [None]
  - Dysphagia [None]
